FAERS Safety Report 8107222-7 (Version None)
Quarter: 2012Q1

REPORT INFORMATION
  Report Type: 
  Country: None (occurrence: None)
  Receive Date: 20120202
  Receipt Date: 20120120
  Transmission Date: 20120608
  Serious: Yes (Other)
  Sender: FDA-Public Use
  Company Number: US-ELI_LILLY_AND_COMPANY-US201012000950

PATIENT
  Sex: Female

DRUGS (1)
  1. FORTEO [Suspect]
     Indication: OSTEOPOROSIS
     Dosage: 20 UG, QD
     Route: 065
     Dates: start: 20100901

REACTIONS (9)
  - INFECTION [None]
  - FATIGUE [None]
  - ABDOMINAL DISCOMFORT [None]
  - PAIN [None]
  - NEPHROLITHIASIS [None]
  - INSOMNIA [None]
  - GLAUCOMA [None]
  - FEAR [None]
  - RENAL DISORDER [None]
